FAERS Safety Report 25188766 (Version 1)
Quarter: 2025Q2

REPORT INFORMATION
  Report Type: Spontaneous
  Country: NL (occurrence: NL)
  Receive Date: 20250411
  Receipt Date: 20250411
  Transmission Date: 20250717
  Serious: Yes (Other)
  Sender: SANDOZ
  Company Number: NL-009507513-2312NLD007646

PATIENT

DRUGS (8)
  1. CYCLOPHOSPHAMIDE [Suspect]
     Active Substance: CYCLOPHOSPHAMIDE
     Indication: Foetal exposure during pregnancy
     Route: 064
  2. DOXORUBICIN [Suspect]
     Active Substance: DOXORUBICIN
     Indication: Foetal exposure during pregnancy
     Route: 064
  3. VINCRISTINE SULFATE [Suspect]
     Active Substance: VINCRISTINE SULFATE
     Indication: Foetal exposure during pregnancy
     Route: 064
  4. COTRIMOXAZOLE [Concomitant]
     Active Substance: SULFAMETHOXAZOLE\TRIMETHOPRIM
     Indication: Product used for unknown indication
     Route: 065
  5. INFLIXIMAB [Interacting]
     Active Substance: INFLIXIMAB
     Indication: Crohn^s disease
     Route: 065
  6. PNEUMOCOCCAL 13-VALENT CONJUGATE VACCINE [Interacting]
     Active Substance: PNEUMOCOCCAL 13-VALENT CONJUGATE VACCINE
     Indication: Prophylaxis
     Route: 065
  7. PREDNISONE [Interacting]
     Active Substance: PREDNISONE
     Indication: Foetal exposure during pregnancy
     Route: 064
  8. RITUXIMAB [Interacting]
     Active Substance: RITUXIMAB
     Indication: Foetal exposure during pregnancy
     Route: 064

REACTIONS (7)
  - Hypogammaglobulinaemia [Unknown]
  - Neutropenia [Unknown]
  - Premature baby [Unknown]
  - Vaccine interaction [Unknown]
  - Vaccination failure [Unknown]
  - Lymphopenia [Recovered/Resolved]
  - Foetal exposure during pregnancy [Recovered/Resolved]
